FAERS Safety Report 9846028 (Version 2)
Quarter: 2014Q1

REPORT INFORMATION
  Report Type: Spontaneous
  Country: US (occurrence: None)
  Receive Date: 20140122
  Receipt Date: 20140218
  Transmission Date: 20141002
  Serious: Yes (Hospitalization, Other)
  Sender: FDA-Public Use
  Company Number: KAD201401-000023

PATIENT
  Age: 63 Year
  Sex: Male
  Weight: 98.2 kg

DRUGS (9)
  1. RIBASPHERE [Suspect]
     Dosage: 1200 MG (600 MG TWICE DAILY),
     Route: 048
     Dates: start: 20131030, end: 20140107
  2. SOFOSBUVIR/LEDIPASVIR [Suspect]
     Route: 048
     Dates: start: 20131030
  3. LASIX (FUROSEMIDE) [Concomitant]
  4. HEPARIN (HEPARIN) [Concomitant]
  5. PRENATAL MULTIVITAMIN WITH FOLIC ACID 1MG [Concomitant]
  6. VITAMIN D3 (CHOLECALCIFEROL) [Concomitant]
  7. TACROLIMUS (TACROLIMUS) [Concomitant]
  8. MAGNESIUM OXIDE (MAGNESIUM OXIDE) [Concomitant]
  9. ALBUMIN HUMAN (ALBUMIN HUMAN) [Concomitant]

REACTIONS (16)
  - Renal failure acute [None]
  - Fatigue [None]
  - Anaemia [None]
  - Pleural effusion [None]
  - Diarrhoea [None]
  - Nephrolithiasis [None]
  - Orthopnoea [None]
  - Weight decreased [None]
  - Rash macular [None]
  - Bone marrow failure [None]
  - Haemothorax [None]
  - Atelectasis [None]
  - Transaminases increased [None]
  - Hepatic cirrhosis [None]
  - Flank pain [None]
  - Transplant rejection [None]
